FAERS Safety Report 4737933-2 (Version None)
Quarter: 2005Q3

REPORT INFORMATION
  Report Type: 
  Country: None (occurrence: None)
  Receive Date: 20050803
  Receipt Date: 20050719
  Transmission Date: 20060218
  Serious: Yes (Hospitalization)
  Sender: FDA-Public Use
  Company Number: 863#3#2005-00008

PATIENT
  Age: 68 Year
  Sex: Female

DRUGS (8)
  1. IDROLAX (MACROGOL) [Suspect]
     Dosage: 2X 10G DAILY ORAL
     Route: 048
  2. LEVODOPA (BENSERAZIDE HYDROCHLORIDE, LEVODOPA) [Suspect]
     Indication: PARKINSON'S DISEASE
     Dosage: SEE IMAGE
     Route: 048
     Dates: end: 20050223
  3. PERGOLIDE MESYLATE [Suspect]
     Indication: PARKINSON'S DISEASE
     Dosage: 1.5MG 3 IN 1 DAY (S) )
     Dates: start: 20031120
  4. BETAXOLOL [Suspect]
     Dosage: 20 MG 1 IN 1 DAY (S) )
     Route: 048
  5. HEPTAMINOL HYDROCHLORIDE (HEPTAMINOL HYDROCHLORIDE) [Concomitant]
  6. VENLAFAXINE HCL [Concomitant]
  7. ALPRAZOLAM [Concomitant]
  8. LYSINE ASPIRIN (ACETYLSALICYLATE LYSINE) [Concomitant]

REACTIONS (8)
  - AKINESIA [None]
  - AORTIC VALVE INCOMPETENCE [None]
  - ATRIAL FLUTTER [None]
  - DYSPNOEA [None]
  - MITRAL VALVE INCOMPETENCE [None]
  - OEDEMA PERIPHERAL [None]
  - PERICARDIAL EFFUSION [None]
  - TRICUSPID VALVE INCOMPETENCE [None]
